FAERS Safety Report 4285262-6 (Version None)
Quarter: 2004Q1

REPORT INFORMATION
  Report Type: 
  Country: None (occurrence: None)
  Receive Date: 20040202
  Receipt Date: 20040107
  Transmission Date: 20041129
  Serious: Yes (Life-Threatening, Hospitalization)
  Sender: FDA-Public Use
  Company Number: 2004-BP-00071BP

PATIENT
  Age: 78 Year
  Sex: Female
  Weight: 108.8 kg

DRUGS (10)
  1. MOBIC [Suspect]
     Indication: OSTEOARTHRITIS
     Dosage: SEE IMAGE
     Route: 048
     Dates: start: 20011016, end: 20011211
  2. MOBIC [Suspect]
     Indication: OSTEOARTHRITIS
     Dosage: SEE IMAGE
     Route: 048
     Dates: start: 20011212, end: 20040101
  3. ASPIRIN [Concomitant]
  4. LASIX [Concomitant]
  5. AVANDIN [Concomitant]
  6. AVALINE [Concomitant]
  7. GLUCOTROL [Concomitant]
  8. ULTRUCET [Concomitant]
  9. LIPITOR [Concomitant]
  10. NORVASC [Concomitant]

REACTIONS (1)
  - PERFORATED ULCER [None]
